FAERS Safety Report 10504860 (Version 1)
Quarter: 2014Q3

REPORT INFORMATION
  Report Type: Spontaneous
  Country: US (occurrence: None)
  Receive Date: 20140929
  Receipt Date: 20140929
  Transmission Date: 20150326
  Serious: Yes (Other)
  Sender: FDA-Public Use
  Company Number: US-2014-12231

PATIENT
  Age: 23 Year
  Sex: Male

DRUGS (2)
  1. ABILIFY [Concomitant]
     Active Substance: ARIPIPRAZOLE
  2. ABILIFY [Suspect]
     Active Substance: ARIPIPRAZOLE
     Indication: SCHIZOPHRENIA
     Dosage: UNK, QM, IM (DEPOT)
     Dates: start: 201407

REACTIONS (1)
  - Hallucination, tactile [None]

NARRATIVE: CASE EVENT DATE: 2014
